FAERS Safety Report 23011874 (Version 4)
Quarter: 2023Q4

REPORT INFORMATION
  Report Type: Report from Study
  Country: IL (occurrence: IL)
  Receive Date: 20230929
  Receipt Date: 20231020
  Transmission Date: 20240110
  Serious: Yes (Life-Threatening, Hospitalization)
  Sender: FDA-Public Use
  Company Number: IL-GENMAB-2023-01772

PATIENT
  Age: 51 Year
  Sex: Female

DRUGS (6)
  1. EPCORITAMAB [Suspect]
     Active Substance: EPCORITAMAB
     Indication: Follicular lymphoma
     Dosage: C1 (STEP-UP), CYCLES 2 ? 3 (WEEKLY) AND C4-12 (EVERY 4 WEEKS) PER PROTOCOL
     Route: 058
     Dates: start: 20230313, end: 20230830
  2. EPCORITAMAB [Suspect]
     Active Substance: EPCORITAMAB
     Dosage: C1 (STEP-UP), CYCLES 2 ? 3 (WEEKLY) AND C4-12 (EVERY 4 WEEKS) PER PROTOCOL
     Route: 058
     Dates: start: 20231002
  3. RITUXIMAB [Suspect]
     Active Substance: RITUXIMAB
     Indication: Follicular lymphoma
     Dosage: 580 MG, EVERY 4 WEEKS
     Route: 042
     Dates: start: 20230313, end: 20230705
  4. LENALIDOMIDE [Suspect]
     Active Substance: LENALIDOMIDE
     Indication: Follicular lymphoma
     Dosage: 5 MG DAY 1-21 OF EVERY 28 DAY CYCLE, EVERY 1 DAYS
     Route: 048
     Dates: start: 20230313, end: 20230917
  5. CIPRALEX [Concomitant]
     Active Substance: ESCITALOPRAM OXALATE
     Indication: Anxiety
     Dosage: 10 MILLIGRAM, FREQUENCY: OCCASIONAL
     Dates: start: 1998
  6. OMEPRAZOLE [Concomitant]
     Active Substance: OMEPRAZOLE
     Indication: Abdominal pain upper
     Dosage: 20 MILLIGRAM, FREQUENCY: OCCASIONAL
     Dates: start: 202301

REACTIONS (1)
  - Febrile neutropenia [Recovered/Resolved]

NARRATIVE: CASE EVENT DATE: 20230925
